FAERS Safety Report 4959185-0 (Version None)
Quarter: 2006Q1

REPORT INFORMATION
  Report Type: 
  Country: None (occurrence: None)
  Receive Date: 20060330
  Receipt Date: 20060330
  Transmission Date: 20060701
  Serious: Yes (Hospitalization)
  Sender: FDA-Public Use
  Company Number: None

PATIENT
  Age: 64 Year
  Sex: Female
  Weight: 94.5 kg

DRUGS (1)
  1. CELLCEPT [Suspect]
     Indication: MYASTHENIA GRAVIS
     Dosage: 500 MG ONCE DAILY PO
     Route: 048

REACTIONS (5)
  - ANXIETY [None]
  - FEELING ABNORMAL [None]
  - FEELING OF DESPAIR [None]
  - MAJOR DEPRESSION [None]
  - TEARFULNESS [None]
